FAERS Safety Report 10436695 (Version 1)
Quarter: 2014Q3

REPORT INFORMATION
  Report Type: Spontaneous
  Country: US (occurrence: US)
  Receive Date: 20140908
  Receipt Date: 20140908
  Transmission Date: 20150326
  Serious: Yes (Other)
  Sender: FDA-Public Use
  Company Number: US-BRISTOL-MYERS SQUIBB COMPANY-20790440

PATIENT
  Sex: Male

DRUGS (3)
  1. METHAMPHETAMINE HCL [Concomitant]
     Active Substance: METHAMPHETAMINE HYDROCHLORIDE
  2. DEPAKOTE [Concomitant]
     Active Substance: DIVALPROEX SODIUM
  3. ABILIFY [Suspect]
     Active Substance: ARIPIPRAZOLE
     Dosage: REDUCED TO 10MG

REACTIONS (1)
  - Convulsion [Unknown]
